FAERS Safety Report 14841754 (Version 5)
Quarter: 2019Q1

REPORT INFORMATION
  Report Type: Report from Study
  Country: JP (occurrence: JP)
  Receive Date: 20180503
  Receipt Date: 20190301
  Transmission Date: 20190417
  Serious: Yes (Hospitalization, Other)
  Sender: FDA-Public Use
  Company Number: JP-ACTELION-A-CH2017-165028

PATIENT
  Age: 76 Year
  Sex: Female
  Weight: 43 kg

DRUGS (12)
  1. UPTRAVI [Suspect]
     Active Substance: SELEXIPAG
     Dosage: 0.2 MG, OD
     Route: 048
     Dates: start: 20171023, end: 20171029
  2. LIPITOR [Concomitant]
     Active Substance: ATORVASTATIN CALCIUM
     Dosage: 10 MG, QD
  3. OXYGEN. [Concomitant]
     Active Substance: OXYGEN
  4. DIART [Concomitant]
     Active Substance: AZOSEMIDE
     Dosage: 60 MG, QD
     Dates: start: 20170428
  5. PARIET [Concomitant]
     Active Substance: RABEPRAZOLE SODIUM
     Dosage: 10 MG, QD
     Dates: start: 20170428
  6. OPSUMIT [Suspect]
     Active Substance: MACITENTAN
     Indication: PULMONARY ARTERIAL HYPERTENSION
     Dosage: 10 MG, QD
     Route: 048
     Dates: start: 20171019
  7. TELURON [Concomitant]
     Dosage: 10 MG, QD
  8. MUCODYNE [Concomitant]
     Active Substance: CARBOCYSTEINE
     Indication: INTERSTITIAL LUNG DISEASE
     Dosage: 500 MG, QD
     Dates: start: 20170428
  9. UPTRAVI [Suspect]
     Active Substance: SELEXIPAG
     Indication: PULMONARY ARTERIAL HYPERTENSION
     Dosage: 0.4 MG, OD
     Route: 048
     Dates: start: 20171030, end: 20171127
  10. PLAVIX [Concomitant]
     Active Substance: CLOPIDOGREL BISULFATE
     Indication: CEREBROVASCULAR DISORDER
     Dosage: 75 MG, QD
     Dates: start: 20170428
  11. CODEINE PHOSPHATE ANHYDROUS [Concomitant]
     Active Substance: CODEINE PHOSPHATE ANHYDROUS
     Indication: INTERSTITIAL LUNG DISEASE
     Dosage: 2 G, QD
     Dates: start: 20170428
  12. URSO [Concomitant]
     Active Substance: URSODIOL
     Indication: HEPATIC FUNCTION ABNORMAL
     Dosage: 300 MG, QD
     Dates: start: 20170428

REACTIONS (7)
  - Dyspnoea [Recovered/Resolved]
  - Cellulitis [Recovered/Resolved]
  - Pleural effusion [Recovered/Resolved]
  - Deep vein thrombosis [Recovered/Resolved]
  - Pulmonary arterial hypertension [Recovered/Resolved]
  - Right ventricular failure [Recovered/Resolved]
  - Condition aggravated [Recovered/Resolved]

NARRATIVE: CASE EVENT DATE: 20171127
